FAERS Safety Report 9381417 (Version 2)
Quarter: 2014Q2

REPORT INFORMATION
  Report Type: Report from Study
  Country: CN (occurrence: CN)
  Receive Date: 20130703
  Receipt Date: 20140512
  Transmission Date: 20141212
  Serious: Yes (Death, Other)
  Sender: FDA-Public Use
  Company Number: PHHY2013CN069220

PATIENT
  Age: 48 Year
  Sex: Female

DRUGS (1)
  1. TASIGNA [Suspect]
     Indication: CHRONIC MYELOID LEUKAEMIA
     Dosage: 800 MG, QD
     Route: 048
     Dates: start: 20110518

REACTIONS (4)
  - Death [Fatal]
  - Lymphoma [Unknown]
  - Second primary malignancy [Unknown]
  - General physical health deterioration [Unknown]
